FAERS Safety Report 19721797 (Version 1)
Quarter: 2021Q3

REPORT INFORMATION
  Report Type: Spontaneous
  Country: PL (occurrence: PL)
  Receive Date: 20210819
  Receipt Date: 20210819
  Transmission Date: 20211014
  Serious: Yes (Life-Threatening)
  Sender: FDA-Public Use
  Company Number: PL-TEVA-2021-PL-1942204

PATIENT
  Age: 65 Year
  Weight: 62 kg

DRUGS (1)
  1. OXALIPLATIN. [Suspect]
     Active Substance: OXALIPLATIN
     Indication: COLON CANCER
     Dosage: 220 MG
     Route: 042
     Dates: start: 20210114, end: 20210114

REACTIONS (3)
  - Infusion site pain [Unknown]
  - Hypertension [Unknown]
  - Seizure [Unknown]

NARRATIVE: CASE EVENT DATE: 20210114
